FAERS Safety Report 13992170 (Version 1)
Quarter: 2017Q3

REPORT INFORMATION
  Report Type: Spontaneous
  Country: US (occurrence: US)
  Receive Date: 20170920
  Receipt Date: 20170920
  Transmission Date: 20171128
  Serious: No
  Sender: FDA-Public Use
  Company Number: US-JNJFOC-20170809675

PATIENT
  Age: 17 Year
  Sex: Male
  Weight: 70.31 kg

DRUGS (1)
  1. RISPERDAL [Suspect]
     Active Substance: RISPERIDONE
     Indication: MANIA
     Route: 048

REACTIONS (7)
  - Attention-seeking behaviour [Recovered/Resolved]
  - Dysphonia [Recovered/Resolved]
  - Incorrect dose administered [Unknown]
  - Insomnia [Recovered/Resolved]
  - Repetitive speech [Recovered/Resolved]
  - Drug dose omission [Unknown]
  - Product use in unapproved indication [Unknown]

NARRATIVE: CASE EVENT DATE: 2017
